FAERS Safety Report 7603353-6 (Version None)
Quarter: 2011Q3

REPORT INFORMATION
  Report Type: 
  Country: None (occurrence: None)
  Receive Date: 20110711
  Receipt Date: 20110711
  Transmission Date: 20111222
  Serious: Yes (Life-Threatening, Hospitalization, Other)
  Sender: FDA-Public Use
  Company Number: None

PATIENT
  Sex: Female
  Weight: 214.4 kg

DRUGS (1)
  1. COUMADIN [Suspect]

REACTIONS (4)
  - PRODUCT QUALITY ISSUE [None]
  - DRUG INEFFECTIVE [None]
  - INTERNATIONAL NORMALISED RATIO ABNORMAL [None]
  - THROMBOSIS [None]
